FAERS Safety Report 8909279 (Version 1)
Quarter: 2012Q4

REPORT INFORMATION
  Report Type: Spontaneous
  Country: CA (occurrence: None)
  Receive Date: 20121107
  Receipt Date: 20121107
  Transmission Date: 20130627
  Serious: Yes (Other)
  Sender: FDA-Public Use
  Company Number: CA-009966

PATIENT
  Age: 34 Year
  Sex: Female
  Weight: 108.86 kg

DRUGS (4)
  1. MENOPUR [Suspect]
     Indication: PRODUCT USED FOR UNKNOWN INDICATION
     Route: 058
  2. CHORIONIC GONADOTROPIN [Suspect]
     Indication: PRODUCT USED FOR UNKNOWN INDICATION
     Route: 030
  3. GONAL-F [Suspect]
     Indication: PRODUCT USED FOR UNKNOWN INDICATION
     Route: 030
  4. CELEBREX [Concomitant]

REACTIONS (5)
  - Arthralgia [None]
  - Decreased appetite [None]
  - Insomnia [None]
  - Nausea [None]
  - Weight decreased [None]
